FAERS Safety Report 9002372 (Version 2)
Quarter: 2013Q1

REPORT INFORMATION
  Report Type: Spontaneous
  Country: US (occurrence: US)
  Receive Date: 20130107
  Receipt Date: 20130201
  Transmission Date: 20140127
  Serious: Yes (Hospitalization)
  Sender: FDA-Public Use
  Company Number: PHEH2013US000470

PATIENT
  Age: 44 Year
  Sex: Female
  Weight: 55.78 kg

DRUGS (4)
  1. EXJADE [Suspect]
     Indication: IRON OVERLOAD
     Dosage: 1500 MG, QD
     Route: 048
     Dates: start: 20120425, end: 20130102
  2. EXJADE [Suspect]
     Dosage: 500 MG TID
     Route: 048
  3. HYDREA [Concomitant]
     Indication: SICKLE CELL ANAEMIA
     Dosage: 1500 MG, QD
     Route: 048
     Dates: start: 2008
  4. FOLIC ACID [Concomitant]
     Indication: SICKLE CELL ANAEMIA
     Dosage: 1 MG, QD
     Route: 048
     Dates: start: 1988

REACTIONS (1)
  - Hypotension [Recovered/Resolved]
